FAERS Safety Report 14600682 (Version 1)
Quarter: 2018Q1

REPORT INFORMATION
  Report Type: Spontaneous
  Country: US (occurrence: US)
  Receive Date: 20180305
  Receipt Date: 20180305
  Transmission Date: 20180509
  Serious: Yes (Life-Threatening, Other)
  Sender: FDA-Public Use
  Company Number: US-IMPAX LABORATORIES, INC-2018-IPXL-00636

PATIENT
  Age: 23 Year
  Sex: Female

DRUGS (3)
  1. ADRENACLICK [Suspect]
     Active Substance: EPINEPHRINE
     Indication: NERVE BLOCK
     Dosage: UNK; 1:200,000
     Route: 065
  2. CLONIDINE HYDROCHLORIDE. [Suspect]
     Active Substance: CLONIDINE HYDROCHLORIDE
     Indication: NERVE BLOCK
     Dosage: 50 ?G, UNK
     Route: 065
  3. BUPIVACAINE. [Suspect]
     Active Substance: BUPIVACAINE
     Indication: NERVE BLOCK
     Dosage: 0.25 %, 10 CC; UNK
     Route: 065

REACTIONS (2)
  - Sensation of foreign body [Unknown]
  - Stridor [Recovered/Resolved]
